FAERS Safety Report 9320375 (Version 2)
Quarter: 2013Q2

REPORT INFORMATION
  Report Type: Spontaneous
  Country: PT (occurrence: PT)
  Receive Date: 20130530
  Receipt Date: 20130604
  Transmission Date: 20140414
  Serious: Yes (Hospitalization)
  Sender: FDA-Public Use
  Company Number: PT-B.I. PHARMACEUTICALS,INC./RIDGEFIELD-2013-BI-14434PO

PATIENT
  Age: 81 Year
  Sex: Male

DRUGS (11)
  1. PRADAXA [Suspect]
     Indication: ATRIAL FIBRILLATION
  2. METFORMIN [Concomitant]
  3. CO-DIOVAN FORTE [Concomitant]
     Dosage: 160 + 25MG/ VALSARTAN +HYDROCHLOROTHIAZIDE
  4. ISOSORBIDE MONONITRATE [Concomitant]
  5. ZANITEK [Concomitant]
     Dosage: 20 + 10/ ENALAPRIL + LERCANIDIPINE
  6. LENDORMIN [Concomitant]
  7. OMEPRAZOL [Concomitant]
  8. ZYLORIC [Concomitant]
  9. BISOPROLOL [Concomitant]
  10. LANOXIN [Concomitant]
  11. DUAGEN [Concomitant]

REACTIONS (3)
  - Cerebellar haemorrhage [Not Recovered/Not Resolved]
  - Vomiting [Not Recovered/Not Resolved]
  - Electrolyte imbalance [Not Recovered/Not Resolved]
